FAERS Safety Report 9934939 (Version 1)
Quarter: 2014Q1

REPORT INFORMATION
  Report Type: Report from Study
  Country: US (occurrence: US)
  Receive Date: 20140228
  Receipt Date: 20140228
  Transmission Date: 20141002
  Serious: Yes (Death, Life-Threatening, Other)
  Sender: FDA-Public Use
  Company Number: US-BRISTOL-MYERS SQUIBB COMPANY-20286936

PATIENT
  Age: 65 Year
  Sex: Male
  Weight: 104 kg

DRUGS (15)
  1. NULOJIX [Suspect]
     Indication: IMMUNOSUPPRESSION
     Dosage: LAST DOSE: 27JUN13
     Dates: start: 20120517
  2. ASPIRIN [Concomitant]
     Route: 048
  3. PLAVIX [Concomitant]
     Route: 048
  4. NEXIUM [Concomitant]
     Dosage: DELAYED RELEASE
  5. NOVOLOG [Concomitant]
  6. INSULIN [Concomitant]
     Dosage: SLIDING SCALE
  7. MAGNESIUM OXIDE [Concomitant]
     Route: 048
  8. LOPRESSOR [Concomitant]
     Route: 048
  9. MYCOPHENOLATE SODIUM [Concomitant]
     Route: 048
  10. PROCARDIA [Concomitant]
     Dosage: 1DF: 60MG AND 30MG
     Route: 048
  11. OMEGA 3 FATTY ACID [Concomitant]
     Dosage: POLYUNSATURATED
  12. POTASSIUM [Concomitant]
     Dosage: POTASSIUM AND PHOSPHATE REPLACEMENT
  13. PRAVACHOL [Concomitant]
     Dosage: AT BED TIME
  14. PREDNISONE [Concomitant]
  15. PROGRAF [Concomitant]

REACTIONS (6)
  - Toxoplasmosis [Fatal]
  - Kidney transplant rejection [Unknown]
  - Acute myocardial infarction [Unknown]
  - Atrial fibrillation [Unknown]
  - Renal failure acute [Unknown]
  - Cardiogenic shock [Unknown]
